FAERS Safety Report 22396940 (Version 1)
Quarter: 2023Q2

REPORT INFORMATION
  Report Type: Spontaneous
  Country: KR (occurrence: KR)
  Receive Date: 20230602
  Receipt Date: 20230602
  Transmission Date: 20230722
  Serious: Yes (Death, Life-Threatening, Hospitalization)
  Sender: FDA-Public Use
  Company Number: KR-STRIDES ARCOLAB LIMITED-2023SP008206

PATIENT
  Age: 53 Year
  Sex: Male

DRUGS (8)
  1. TACROLIMUS [Suspect]
     Active Substance: TACROLIMUS
     Indication: Immunosuppressant drug therapy
     Dosage: UNK
     Route: 065
  2. TACROLIMUS [Suspect]
     Active Substance: TACROLIMUS
     Indication: Allogenic stem cell transplantation
  3. FLUDARABINE [Suspect]
     Active Substance: FLUDARABINE PHOSPHATE
     Indication: Bone marrow conditioning regimen
     Dosage: 30 MILLIGRAM/SQ. METER PER DAY
     Route: 065
  4. BUSULFAN [Suspect]
     Active Substance: BUSULFAN
     Indication: Bone marrow conditioning regimen
     Dosage: 3.2 MILLIGRAM/KILOGRAM PER DAY
     Route: 065
  5. THYMOCYTE IMMUNE GLOBULIN NOS [Suspect]
     Active Substance: THYMOCYTE IMMUNE GLOBULIN NOS
     Indication: Bone marrow conditioning regimen
     Dosage: 1.25 MILLIGRAM/KILOGRAM PER DAY
     Route: 065
  6. METHYLPREDNISOLONE [Suspect]
     Active Substance: METHYLPREDNISOLONE
     Indication: Diarrhoea
     Dosage: 62.5 MILLIGRAM PER DAY
     Route: 065
  7. METHYLPREDNISOLONE [Suspect]
     Active Substance: METHYLPREDNISOLONE
     Dosage: UNK (DOSE REDUCED)
     Route: 065
  8. VORICONAZOLE [Concomitant]
     Active Substance: VORICONAZOLE
     Indication: Prophylaxis
     Dosage: UNK
     Route: 065

REACTIONS (10)
  - Respiratory acidosis [Fatal]
  - Multiple organ dysfunction syndrome [Fatal]
  - Cytomegalovirus infection reactivation [Fatal]
  - Cytomegalovirus gastritis [Fatal]
  - Cytomegalovirus colitis [Fatal]
  - Pneumonia cytomegaloviral [Fatal]
  - Meningoencephalitis viral [Fatal]
  - Cystitis haemorrhagic [Unknown]
  - BK virus infection [Unknown]
  - Off label use [Unknown]
